FAERS Safety Report 22345896 (Version 2)
Quarter: 2023Q2

REPORT INFORMATION
  Report Type: Report from Study
  Country: JP (occurrence: JP)
  Receive Date: 20230519
  Receipt Date: 20230523
  Transmission Date: 20230721
  Serious: Yes (Death)
  Sender: FDA-Public Use
  Company Number: JP-AMGEN-JPNCT2023085126

PATIENT
  Age: 51 Year
  Sex: Male
  Weight: 44 kg

DRUGS (18)
  1. SOTORASIB [Suspect]
     Active Substance: SOTORASIB
     Indication: Colorectal cancer stage IV
     Dosage: 960 MILLIGRAM
     Route: 048
     Dates: start: 20220720, end: 20221125
  2. SOTORASIB [Suspect]
     Active Substance: SOTORASIB
     Indication: K-ras gene mutation
  3. PANITUMUMAB [Suspect]
     Active Substance: PANITUMUMAB
     Indication: Colorectal cancer stage IV
     Dosage: UNK
     Route: 042
     Dates: start: 20220720, end: 20221124
  4. PANITUMUMAB [Suspect]
     Active Substance: PANITUMUMAB
     Indication: K-ras gene mutation
  5. URSODIOL [Concomitant]
     Active Substance: URSODIOL
     Dosage: 200 MILLIGRAM
     Route: 048
     Dates: start: 202112
  6. ACETAMINOPHEN [Concomitant]
     Active Substance: ACETAMINOPHEN
     Dosage: 500 MILLIGRAM
     Route: 048
     Dates: start: 202203
  7. LEMBOREXANT [Concomitant]
     Active Substance: LEMBOREXANT
     Dosage: 5 MILLIGRAM
     Route: 048
     Dates: start: 202203
  8. ZINC ACETATE DIHYDRATE [Concomitant]
     Dosage: 50 MILLIGRAM
     Route: 048
     Dates: start: 20220317
  9. HEPARINOID [Concomitant]
     Dosage: 0.5 GRAM
     Route: 061
     Dates: start: 202206
  10. ALCLOMETASONE DIPROPIONATE [Concomitant]
     Active Substance: ALCLOMETASONE DIPROPIONATE
     Dosage: 0.5 GRAM
     Route: 061
     Dates: start: 20220726
  11. BETAMETHASONE VALERATE [Concomitant]
     Active Substance: BETAMETHASONE VALERATE
     Dosage: 0.5 GRAM
     Route: 061
     Dates: start: 20220726
  12. DIFLUPREDNATE [Concomitant]
     Active Substance: DIFLUPREDNATE
     Dosage: 0.5 GRAM
     Route: 061
     Dates: start: 20220726
  13. LOXOPROFEN SODIUM DIHYDRATE [Concomitant]
     Active Substance: LOXOPROFEN SODIUM DIHYDRATE
     Dosage: 60 MILLIGRAM
     Route: 048
     Dates: start: 20221212
  14. OXYCODONE HYDROCHLORIDE TRIHYDRATE [Concomitant]
     Active Substance: OXYCODONE HYDROCHLORIDE TRIHYDRATE
     Dosage: 1.25 MILLILITER
     Route: 042
     Dates: start: 20221212
  15. ESOMEPRAZOLE MAGNESIUM [Concomitant]
     Active Substance: ESOMEPRAZOLE MAGNESIUM
     Dosage: 20 MILLIGRAM
     Route: 048
     Dates: start: 20221216
  16. MOMETASONE FUROATE [Concomitant]
     Active Substance: MOMETASONE FUROATE
     Dosage: 2 UNK
     Route: 045
     Dates: start: 20221216
  17. NAPROXEN [Concomitant]
     Active Substance: NAPROXEN
     Dosage: 200 MILLIGRAM
     Route: 048
     Dates: start: 20221216
  18. RAMUCIRUMAB [Concomitant]
     Active Substance: RAMUCIRUMAB
     Dosage: UNK
     Route: 065
     Dates: start: 20221220, end: 20230105

REACTIONS (1)
  - Colorectal cancer [Fatal]

NARRATIVE: CASE EVENT DATE: 20230126
